FAERS Safety Report 15494745 (Version 2)
Quarter: 2018Q4

REPORT INFORMATION
  Report Type: Spontaneous
  Country: GB (occurrence: GB)
  Receive Date: 20181012
  Receipt Date: 20181031
  Transmission Date: 20190205
  Serious: Yes (Other)
  Sender: FDA-Public Use
  Company Number: PHHY2018GB122985

PATIENT
  Age: 24 Year
  Sex: Female

DRUGS (3)
  1. TEGRETOL [Suspect]
     Active Substance: CARBAMAZEPINE
     Dosage: 4 DF, BID (IN THE MORNING AND IN THE EVENING)
     Route: 048
  2. TEGRETOL [Suspect]
     Active Substance: CARBAMAZEPINE
     Dosage: 8 DF, QD  (4 DF IN MORNING AND 4 IN EVEING)
     Route: 048
  3. TEGRETOL [Suspect]
     Active Substance: CARBAMAZEPINE
     Indication: EPILEPSY
     Dosage: UNK
     Route: 048

REACTIONS (7)
  - Product taste abnormal [Unknown]
  - Malaise [Not Recovered/Not Resolved]
  - Product formulation issue [Unknown]
  - Inappropriate schedule of product administration [Not Recovered/Not Resolved]
  - Seizure [Unknown]
  - Frustration tolerance decreased [Unknown]
  - Aggression [Unknown]

NARRATIVE: CASE EVENT DATE: 2010
